FAERS Safety Report 11754664 (Version 1)
Quarter: 2015Q4

REPORT INFORMATION
  Report Type: Spontaneous
  Country: US (occurrence: None)
  Receive Date: 20151118
  Receipt Date: 20151118
  Transmission Date: 20160304
  Serious: No
  Sender: FDA-Public Use
  Company Number: None

PATIENT
  Age: 53 Year
  Sex: Male

DRUGS (1)
  1. APOKYN [Suspect]
     Active Substance: APOMORPHINE HYDROCHLORIDE
     Indication: PARKINSON^S DISEASE
     Dosage: 0.2ML 5 TIMES PER DAY SUBCUTANEOUS
     Route: 058
     Dates: start: 20151103, end: 20151110

REACTIONS (1)
  - Chest pain [None]

NARRATIVE: CASE EVENT DATE: 20151103
